FAERS Safety Report 20176168 (Version 1)
Quarter: 2021Q4

REPORT INFORMATION
  Report Type: Spontaneous
  Country: US (occurrence: None)
  Receive Date: 20211213
  Receipt Date: 20211213
  Transmission Date: 20220303
  Serious: Yes (Hospitalization)
  Sender: FDA-Public Use
  Company Number: None

PATIENT
  Age: 45 Year
  Sex: Female

DRUGS (1)
  1. ORENCIA [Suspect]
     Active Substance: ABATACEPT
     Dosage: OTHER FREQUENCY : N/A;?
     Route: 058
     Dates: start: 202110

REACTIONS (2)
  - Infection [None]
  - Intentional dose omission [None]

NARRATIVE: CASE EVENT DATE: 20211129
